FAERS Safety Report 6843472-5 (Version None)
Quarter: 2010Q3

REPORT INFORMATION
  Report Type: 
  Country: None (occurrence: None)
  Receive Date: 20100715
  Receipt Date: 20100707
  Transmission Date: 20110219
  Serious: Yes (Other)
  Sender: FDA-Public Use
  Company Number: US-JNJFOC-20100502947

PATIENT
  Sex: Male

DRUGS (2)
  1. LEVAQUIN [Suspect]
     Indication: DIVERTICULITIS
     Route: 048
  2. LEVAQUIN [Suspect]
     Route: 042

REACTIONS (3)
  - MENISCUS LESION [None]
  - PAIN IN EXTREMITY [None]
  - TENDONITIS [None]
